FAERS Safety Report 8579928-7 (Version None)
Quarter: 2012Q3

REPORT INFORMATION
  Report Type: 
  Country: None (occurrence: None)
  Receive Date: 20120808
  Receipt Date: 20120727
  Transmission Date: 20120928
  Serious: Yes (Hospitalization)
  Sender: FDA-Public Use
  Company Number: IT-ELI_LILLY_AND_COMPANY-IT200903004823

PATIENT
  Age: 39 Year
  Sex: Male

DRUGS (4)
  1. METFORMIN HYDROCHLORIDE [Concomitant]
     Indication: APPETITE DISORDER
     Dosage: 225 MG, QD
     Route: 048
     Dates: start: 20090313, end: 20090316
  2. PROZAC [Suspect]
     Indication: APPETITE DISORDER
     Dosage: 32 MG, QD
     Route: 048
     Dates: start: 20090313, end: 20090316
  3. BUSPIRONE HCL [Concomitant]
     Indication: APPETITE DISORDER
     Dosage: 50 MG, QD
     Route: 048
     Dates: start: 20090313, end: 20090316
  4. BUPROPION HCL [Concomitant]
     Indication: APPETITE DISORDER
     Dosage: 135 MG, QD
     Route: 048
     Dates: start: 20090313, end: 20090316

REACTIONS (4)
  - OFF LABEL USE [None]
  - LOSS OF CONSCIOUSNESS [None]
  - HYPERTENSION [None]
  - ERYTHEMA [None]
